FAERS Safety Report 6069337-7 (Version None)
Quarter: 2009Q1

REPORT INFORMATION
  Report Type: 
  Country: None (occurrence: None)
  Receive Date: 20090206
  Receipt Date: 20090129
  Transmission Date: 20090719
  Serious: Yes (Hospitalization)
  Sender: FDA-Public Use
  Company Number: FR-PFIZER INC-2009163338

PATIENT

DRUGS (8)
  1. TAHOR [Suspect]
     Dosage: 20 MG, 1X/DAY
     Dates: start: 20071220
  2. COVERSYL [Suspect]
     Dosage: 1 MG, 1X/DAY
     Route: 048
  3. LASILIX [Concomitant]
     Dates: end: 20080731
  4. CARDENSIEL [Concomitant]
  5. DOMPERIDONE [Concomitant]
  6. NEXIUM [Concomitant]
  7. DIGOXIN [Concomitant]
  8. TAVANIC [Concomitant]
     Indication: LUNG INFECTION
     Dosage: 500 MG, 1X/DAY
     Dates: start: 20080722

REACTIONS (1)
  - LUNG DISORDER [None]
